FAERS Safety Report 5867001-8 (Version None)
Quarter: 2008Q3

REPORT INFORMATION
  Report Type: 
  Country: None (occurrence: None)
  Receive Date: 20080902
  Receipt Date: 20080825
  Transmission Date: 20090109
  Serious: Yes (Disabling)
  Sender: FDA-Public Use
  Company Number: A0737224A

PATIENT
  Age: 67 Year
  Sex: Female
  Weight: 97.7 kg

DRUGS (6)
  1. ADVAIR DISKUS 100/50 [Suspect]
     Indication: CHRONIC OBSTRUCTIVE PULMONARY DISEASE
     Route: 055
  2. PRAVACHOL [Concomitant]
     Indication: BLOOD CHOLESTEROL INCREASED
  3. HYDROCHLOROTHIAZIDE [Concomitant]
  4. PRILOSEC [Concomitant]
     Indication: DYSPEPSIA
  5. ALBUTEROL [Concomitant]
     Indication: CHRONIC OBSTRUCTIVE PULMONARY DISEASE
  6. ARIMIDEX [Concomitant]
     Indication: BREAST CANCER

REACTIONS (3)
  - JOINT SWELLING [None]
  - MUSCULOSKELETAL STIFFNESS [None]
  - PAIN IN EXTREMITY [None]
